FAERS Safety Report 8120029-X (Version None)
Quarter: 2012Q1

REPORT INFORMATION
  Report Type: 
  Country: None (occurrence: None)
  Receive Date: 20120206
  Receipt Date: 20120206
  Transmission Date: 20120608
  Serious: Yes (Other)
  Sender: FDA-Public Use
  Company Number: None

PATIENT
  Sex: Female

DRUGS (1)
  1. NORETHINDRONE ACETATE AND ETHINYL ESTRADIOL [Suspect]
     Indication: MENOPAUSE
     Dosage: 0.5MG - 0.1MG DAILY PO
     Route: 048
     Dates: start: 20110928, end: 20111008

REACTIONS (6)
  - MENOPAUSAL SYMPTOMS [None]
  - FATIGUE [None]
  - FLUSHING [None]
  - INSOMNIA [None]
  - HOT FLUSH [None]
  - IRRITABILITY [None]
